FAERS Safety Report 5578093-8 (Version None)
Quarter: 2007Q4

REPORT INFORMATION
  Report Type: 
  Country: None (occurrence: None)
  Receive Date: 20071231
  Receipt Date: 20071227
  Transmission Date: 20080405
  Serious: Yes (Hospitalization, Other)
  Sender: FDA-Public Use
  Company Number: BE-MERCK-0710BEL00021

PATIENT
  Age: 76 Year
  Sex: Female

DRUGS (6)
  1. FOSAMAX [Suspect]
     Indication: OSTEOPOROSIS
     Route: 048
     Dates: start: 19990801, end: 20060101
  2. FOSAMAX PLUS D [Suspect]
     Indication: OSTEOPOROSIS
     Route: 048
     Dates: start: 20060101
  3. ESTRADIOL AND NORETHINDRONE ACETATE [Concomitant]
     Route: 061
  4. ASPIRIN [Concomitant]
     Indication: PROPHYLAXIS
     Route: 048
  5. SIMVASTATIN [Concomitant]
     Indication: HYPERCHOLESTEROLAEMIA
     Route: 048
     Dates: start: 20060101
  6. CALCIUM (UNSPECIFIED) AND MAGNESIUM (UNSPECIFIED) [Concomitant]
     Route: 048
     Dates: start: 20070101

REACTIONS (12)
  - CAROTID ARTERY OCCLUSION [None]
  - COELIAC DISEASE [None]
  - FOLATE DEFICIENCY [None]
  - GENERAL PHYSICAL HEALTH DETERIORATION [None]
  - HYPERSENSITIVITY [None]
  - INFLAMMATION [None]
  - MYOCARDIAL INFARCTION [None]
  - OSTEOMYELITIS [None]
  - PAIN IN JAW [None]
  - TENDONITIS [None]
  - TOOTH DEPOSIT [None]
  - TOOTH INFECTION [None]
